FAERS Safety Report 5386141-3 (Version None)
Quarter: 2007Q3

REPORT INFORMATION
  Report Type: 
  Country: None (occurrence: None)
  Receive Date: 20070711
  Receipt Date: 20070711
  Transmission Date: 20080115
  Serious: No
  Sender: FDA-Public Use
  Company Number: None

PATIENT
  Sex: Male

DRUGS (2)
  1. OXYCONTIN [Suspect]
     Indication: DIABETES MELLITUS
     Dosage: 2 TABS TID PO DAILY
     Route: 048
  2. OXYCONTIN [Suspect]
     Indication: POLYNEUROPATHY
     Dosage: 2 TABS TID PO DAILY
     Route: 048

REACTIONS (5)
  - ABDOMINAL PAIN [None]
  - DRUG EFFECT DECREASED [None]
  - NAUSEA [None]
  - PHARMACEUTICAL PRODUCT COMPLAINT [None]
  - THERAPEUTIC RESPONSE UNEXPECTED WITH DRUG SUBSTITUTION [None]
